APPROVED DRUG PRODUCT: INOMAX
Active Ingredient: NITRIC OXIDE
Strength: 4880PPM
Dosage Form/Route: GAS;INHALATION
Application: N020845 | Product #004
Applicant: MALLINCKRODT PHARMACEUTICALS IRELAND LTD
Approved: Jan 17, 2023 | RLD: Yes | RS: Yes | Type: RX

PATENTS:
Patent 11931377 | Expires: Jun 30, 2029